FAERS Safety Report 16726043 (Version 1)
Quarter: 2019Q3

REPORT INFORMATION
  Report Type: Spontaneous
  Country: CA (occurrence: CA)
  Receive Date: 20190821
  Receipt Date: 20190821
  Transmission Date: 20191005
  Serious: Yes (Other)
  Sender: FDA-Public Use
  Company Number: CA-TEVA-2019-CA-1095309

PATIENT
  Age: 56 Year
  Sex: Male

DRUGS (1)
  1. METHOTREXATE. [Suspect]
     Active Substance: METHOTREXATE
     Indication: RHEUMATOID ARTHRITIS
     Route: 065

REACTIONS (5)
  - Pneumonia [Recovering/Resolving]
  - White blood cell count abnormal [Recovering/Resolving]
  - Drug ineffective [Recovering/Resolving]
  - Polymyalgia rheumatica [Recovering/Resolving]
  - Bursitis [Recovering/Resolving]
